FAERS Safety Report 7029294-3 (Version None)
Quarter: 2010Q4

REPORT INFORMATION
  Report Type: 
  Country: None (occurrence: None)
  Receive Date: 20101005
  Receipt Date: 20100921
  Transmission Date: 20110411
  Serious: Yes (Other)
  Sender: FDA-Public Use
  Company Number: PHHY2010JP36160

PATIENT
  Sex: Male

DRUGS (1)
  1. ZOMETA [Suspect]
     Indication: METASTASES TO BONE
     Route: 041

REACTIONS (10)
  - BONE DISORDER [None]
  - GINGIVAL SWELLING [None]
  - IMPAIRED HEALING [None]
  - ORAL CAVITY FISTULA [None]
  - OSTEOLYSIS [None]
  - OSTEONECROSIS OF JAW [None]
  - OSTEOSCLEROSIS [None]
  - PURULENT DISCHARGE [None]
  - TOOTH DISORDER [None]
  - TOOTH EXTRACTION [None]
